FAERS Safety Report 4880994-0 (Version None)
Quarter: 2005Q4

REPORT INFORMATION
  Report Type: 
  Country: None (occurrence: None)
  Receive Date: 20051223
  Receipt Date: 20051021
  Transmission Date: 20060501
  Serious: Yes (Death, Hospitalization)
  Sender: FDA-Public Use
  Company Number: 05P-163-0313560-00

PATIENT
  Age: 81 Year
  Sex: Female

DRUGS (13)
  1. HUMIRA [Suspect]
     Dosage: 40 MG, SUBCUTANEOUS
     Route: 058
  2. AMOXICILLIN AND CLAVULANATE POTASSIUM [Concomitant]
  3. BACTRIM [Concomitant]
  4. FUROSEMIDE [Concomitant]
  5. METOPROLOL SUCCINATE [Concomitant]
  6. K-DUR 10 [Concomitant]
  7. FLUTICASONE PROPIONATE [Concomitant]
  8. SERETIDE MITE [Concomitant]
  9. DUONEB [Concomitant]
  10. METOCLOPRAMIDE [Concomitant]
  11. METHOTREXATE [Concomitant]
  12. LISINOPRIL [Concomitant]
  13. DEPAKOTE ER [Concomitant]

REACTIONS (15)
  - AGITATION [None]
  - CARDIAC FAILURE CONGESTIVE [None]
  - CELLULITIS [None]
  - CHRONIC OBSTRUCTIVE PULMONARY DISEASE [None]
  - DECUBITUS ULCER [None]
  - DEMENTIA [None]
  - FATIGUE [None]
  - HIATUS HERNIA [None]
  - HYPERTENSION [None]
  - MALAISE [None]
  - MENTAL STATUS CHANGES [None]
  - PNEUMONIA [None]
  - PULMONARY FIBROSIS [None]
  - PYELONEPHRITIS [None]
  - VENOUS INSUFFICIENCY [None]
